FAERS Safety Report 10278246 (Version 1)
Quarter: 2014Q3

REPORT INFORMATION
  Report Type: Spontaneous
  Country: US (occurrence: US)
  Receive Date: 20140704
  Receipt Date: 20140704
  Transmission Date: 20150326
  Serious: Yes (Other)
  Sender: FDA-Public Use
  Company Number: US-PFIZER INC-2014180290

PATIENT
  Age: 61 Year
  Sex: Female
  Weight: 56.69 kg

DRUGS (2)
  1. LYRICA [Suspect]
     Active Substance: PREGABALIN
     Indication: FIBROMYALGIA
     Dosage: 75 MG, DAILY
  2. PRILOSEC [Concomitant]
     Active Substance: OMEPRAZOLE MAGNESIUM
     Indication: HYPERCHLORHYDRIA
     Dosage: 20.6 MG, DAILY

REACTIONS (9)
  - Tremor [Unknown]
  - Panic attack [Unknown]
  - Dizziness [Unknown]
  - Drug ineffective [Unknown]
  - Weight decreased [Unknown]
  - Blood pressure increased [Unknown]
  - Paraesthesia [Unknown]
  - Pain [Unknown]
  - Vision blurred [Unknown]
